FAERS Safety Report 8006845-3 (Version None)
Quarter: 2011Q4

REPORT INFORMATION
  Report Type: 
  Country: None (occurrence: None)
  Receive Date: 20111227
  Receipt Date: 20111219
  Transmission Date: 20120403
  Serious: Yes (Hospitalization)
  Sender: FDA-Public Use
  Company Number: JP-B.I. PHARMACEUTICALS,INC./RIDGEFIELD-2011-BP-28395NB

PATIENT
  Age: 84 Year
  Sex: Male

DRUGS (6)
  1. PRADAXA [Suspect]
     Dosage: 220 MG
     Route: 048
     Dates: end: 20111216
  2. SENNOSIDE [Concomitant]
     Dosage: 12 MG
     Route: 048
  3. MAGNESIUM OXIDE [Concomitant]
     Dosage: 750 MG
     Route: 048
  4. HACHIMI-JIO-GAN [Concomitant]
     Dosage: 7.5 G
     Route: 048
  5. CEROCRAL [Concomitant]
     Dosage: 60 MG
     Route: 048
     Dates: end: 20111216
  6. NICARDIPINE HCL [Concomitant]
     Dosage: 20 MG
     Route: 048

REACTIONS (3)
  - ANAEMIA [None]
  - PYREXIA [None]
  - CHILLS [None]
